FAERS Safety Report 5394098-4 (Version None)
Quarter: 2007Q3

REPORT INFORMATION
  Report Type: 
  Country: None (occurrence: None)
  Receive Date: 20070723
  Receipt Date: 20070309
  Transmission Date: 20080115
  Serious: No
  Sender: FDA-Public Use
  Company Number: A0642959A

PATIENT
  Age: 58 Year
  Sex: Male

DRUGS (2)
  1. AVANDIA [Suspect]
  2. MONOPRIL [Suspect]
     Indication: HYPERTENSION

REACTIONS (7)
  - ADVERSE EVENT [None]
  - BLOOD GLUCOSE INCREASED [None]
  - BURNING SENSATION [None]
  - GASTROINTESTINAL DISORDER [None]
  - GASTROOESOPHAGEAL REFLUX DISEASE [None]
  - MYALGIA [None]
  - NEUROLOGICAL SYMPTOM [None]
